FAERS Safety Report 7816977-8 (Version None)
Quarter: 2011Q4

REPORT INFORMATION
  Report Type: 
  Country: None (occurrence: None)
  Receive Date: 20111017
  Receipt Date: 20111008
  Transmission Date: 20120403
  Serious: Yes (Hospitalization)
  Sender: FDA-Public Use
  Company Number: US-BRISTOL-MYERS SQUIBB COMPANY-16120214

PATIENT
  Age: 71 Year
  Sex: Male

DRUGS (10)
  1. COMBIVENT [Concomitant]
     Dosage: COMBIVENT INHALER
     Route: 055
  2. LOSARTAN POTASSIUM [Concomitant]
  3. COUMADIN [Suspect]
     Dosage: 1DF: 5 UNITS NOS,BOTTLE 1X1000US
     Dates: end: 20110901
  4. FISH OIL [Concomitant]
  5. FUROSEMIDE [Concomitant]
  6. METOPROLOL TARTRATE [Concomitant]
  7. MULTI-VITAMIN [Concomitant]
  8. POTASSIUM [Concomitant]
  9. ASPIRIN [Concomitant]
  10. SIMVASTATIN [Concomitant]

REACTIONS (2)
  - CEREBROVASCULAR ACCIDENT [None]
  - DRUG INEFFECTIVE [None]
